FAERS Safety Report 8132253-0 (Version None)
Quarter: 2012Q1

REPORT INFORMATION
  Report Type: 
  Country: None (occurrence: None)
  Receive Date: 20120208
  Receipt Date: 20120203
  Transmission Date: 20120608
  Serious: Yes (Death, Other)
  Sender: FDA-Public Use
  Company Number: 2011SP057865

PATIENT
  Age: 63 Year
  Sex: Male

DRUGS (13)
  1. MAGNESIUM OXIDE [Concomitant]
  2. LORAZEPAM [Concomitant]
  3. MIRTAZAPINE [Suspect]
     Indication: DEPRESSION
     Dosage: 15 MG;QD;PO ; 22.5 MG;QD;PO
     Route: 048
     Dates: start: 20110825, end: 20111201
  4. LENDORMIN [Concomitant]
  5. BROMAZEPAM [Concomitant]
  6. CHINESE HERBAL MEDICINE [Concomitant]
  7. CYMBALTA [Suspect]
     Indication: DEPRESSION
     Dosage: 40 MG;QD;PO
     Route: 048
     Dates: start: 20110825, end: 20111201
  8. AMLODIPINE BESYLATE [Concomitant]
  9. CLONAZEPAM [Concomitant]
  10. ZOLPIDEM [Concomitant]
  11. DEPAKENE [Concomitant]
  12. SULPIRIDE [Concomitant]
  13. LORAZEPAM [Concomitant]

REACTIONS (9)
  - LETHARGY [None]
  - COMPLETED SUICIDE [None]
  - CONDITION AGGRAVATED [None]
  - DEPRESSION [None]
  - REFUSAL OF TREATMENT BY PATIENT [None]
  - REFUSAL OF TREATMENT BY RELATIVE [None]
  - RESTLESSNESS [None]
  - INSOMNIA [None]
  - ANXIETY [None]
